FAERS Safety Report 19675170 (Version 2)
Quarter: 2021Q3

REPORT INFORMATION
  Report Type: Spontaneous
  Country: US (occurrence: US)
  Receive Date: 20210809
  Receipt Date: 20210906
  Transmission Date: 20211014
  Serious: No
  Sender: FDA-Public Use
  Company Number: US-ASTRAZENECA-2021A630747

PATIENT
  Sex: Female
  Weight: 158.8 kg

DRUGS (3)
  1. BYDUREON BCISE [Suspect]
     Active Substance: EXENATIDE
     Indication: GLYCOSYLATED HAEMOGLOBIN INCREASED
     Route: 058
  2. BYDUREON [Suspect]
     Active Substance: EXENATIDE
     Indication: GLYCOSYLATED HAEMOGLOBIN INCREASED
     Route: 058
  3. INSULIN [Concomitant]
     Active Substance: INSULIN NOS
     Dates: start: 2007

REACTIONS (6)
  - Wrong technique in product usage process [Unknown]
  - Injection site injury [Unknown]
  - Device leakage [Unknown]
  - Product use issue [Unknown]
  - Injection site haemorrhage [Unknown]
  - Injection site laceration [Unknown]
